FAERS Safety Report 16818513 (Version 1)
Quarter: 2019Q3

REPORT INFORMATION
  Report Type: Spontaneous
  Country: US (occurrence: US)
  Receive Date: 20190917
  Receipt Date: 20190917
  Transmission Date: 20191005
  Serious: No
  Sender: FDA-Public Use
  Company Number: US-CELGENEUS-USA-20190903372

PATIENT
  Sex: Female

DRUGS (2)
  1. OTEZLA [Suspect]
     Active Substance: APREMILAST
     Route: 048
  2. OTEZLA [Suspect]
     Active Substance: APREMILAST
     Indication: JUVENILE PSORIATIC ARTHRITIS
     Dosage: TITRATION PACK 10/20/30MG
     Route: 048

REACTIONS (5)
  - Chest pain [Unknown]
  - Dizziness [Unknown]
  - Arthralgia [Unknown]
  - Drug ineffective [Unknown]
  - Feeling abnormal [Unknown]
